FAERS Safety Report 6969939-7 (Version None)
Quarter: 2010Q3

REPORT INFORMATION
  Report Type: 
  Country: None (occurrence: None)
  Receive Date: 20100908
  Receipt Date: 20100902
  Transmission Date: 20110219
  Serious: Yes (Hospitalization, Other)
  Sender: FDA-Public Use
  Company Number: US-ASTRAZENECA-2007UW18749

PATIENT
  Age: 17 Year
  Sex: Female
  Weight: 132 kg

DRUGS (13)
  1. SEROQUEL [Suspect]
     Indication: HALLUCINATION, AUDITORY
     Dosage: 200 MG TO 600 MG
     Route: 048
     Dates: start: 19990101, end: 20061001
  2. SEROQUEL [Suspect]
     Indication: SLEEP DISORDER
     Dosage: 200 MG TO 600 MG
     Route: 048
     Dates: start: 19990101, end: 20061001
  3. SEROQUEL [Suspect]
     Indication: DEPRESSION
     Dosage: 200 MG TO 600 MG
     Route: 048
     Dates: start: 19990101, end: 20061001
  4. SEROQUEL [Suspect]
     Dosage: 100-600 MG
     Route: 048
     Dates: start: 20020101, end: 20050415
  5. SEROQUEL [Suspect]
     Dosage: 100-600 MG
     Route: 048
     Dates: start: 20020101, end: 20050415
  6. SEROQUEL [Suspect]
     Dosage: 100-600 MG
     Route: 048
     Dates: start: 20020101, end: 20050415
  7. RISPERDAL [Concomitant]
     Indication: DEPRESSION
     Dates: start: 20050201
  8. ABILIFY [Concomitant]
     Dates: start: 20040412, end: 20041229
  9. GEODON [Concomitant]
     Dosage: 80 MG TO 160 MG
     Dates: start: 20050712
  10. ZOLOFT [Concomitant]
     Dates: start: 20040412, end: 20040728
  11. PAXIL [Concomitant]
     Dosage: 10 MG TO 20 MG
     Dates: start: 20000105
  12. TRAZODONE HCL [Concomitant]
  13. LEXAPRO [Concomitant]
     Dosage: 10 MG TO 20 MG
     Dates: start: 20040412, end: 20040728

REACTIONS (3)
  - CARPAL TUNNEL SYNDROME [None]
  - DIABETES MELLITUS [None]
  - PANCREATITIS [None]
